FAERS Safety Report 7570080 (Version 2)
Quarter: 2018Q3

REPORT INFORMATION
  Report Type: Report from Study
  Country: JP (occurrence: JP)
  Receive Date: 20100901
  Receipt Date: 20180830
  Transmission Date: 20181010
  Serious: Yes (Death)
  Sender: FDA-Public Use
  Company Number: PHHY2010JP36318

PATIENT
  Age: 81 Year
  Sex: Female

DRUGS (2)
  1. GASTER [Concomitant]
     Active Substance: FAMOTIDINE
     Indication: PROPHYLAXIS
     Dosage: 40 MG, UNK
     Route: 048
     Dates: start: 20090922
  2. TASIGNA [Suspect]
     Active Substance: NILOTINIB
     Indication: CHRONIC MYELOID LEUKAEMIA
     Dosage: 300 MG, QD
     Route: 048
     Dates: start: 20091008, end: 20100505

REACTIONS (3)
  - Lipase increased [Recovered/Resolved]
  - Pyrexia [Unknown]
  - Pyelonephritis acute [Fatal]

NARRATIVE: CASE EVENT DATE: 20091013
